FAERS Safety Report 20488969 (Version 1)
Quarter: 2022Q1

REPORT INFORMATION
  Report Type: Spontaneous
  Country: DE (occurrence: DE)
  Receive Date: 20220218
  Receipt Date: 20220218
  Transmission Date: 20220423
  Serious: Yes (Other)
  Sender: FDA-Public Use
  Company Number: DE-EMBRYOTOX-202005997

PATIENT
  Sex: Female
  Weight: 55 kg

DRUGS (3)
  1. PREDNISOLONE [Suspect]
     Active Substance: PREDNISOLONE
     Indication: Sjogren^s syndrome
     Dosage: 5 MILLIGRAM DAILY; ADDITIONAL INFO : 0. - 36.5. GESTATIONAL WEEK
     Route: 048
     Dates: start: 20200415, end: 20201228
  2. HYDROXYCHLOROQUINE [Concomitant]
     Active Substance: HYDROXYCHLOROQUINE
     Indication: Sjogren^s syndrome
     Dosage: 200 MILLIGRAM DAILY; ADDITIONAL INFO : 0. - 36.5. GESTATIONAL WEEK
     Route: 048
     Dates: start: 20200415, end: 20201228
  3. METHOTREXATE [Concomitant]
     Active Substance: METHOTREXATE
     Indication: Sjogren^s syndrome
     Dosage: 15 [MG/WK ]/ MTX WAS STOPPED 25 DAYS BEFORE CONCEPTION , ADDITIONAL INFO : TRIMESTER: PRECONCEPTIONA
     Route: 058

REACTIONS (3)
  - Preterm premature rupture of membranes [Recovered/Resolved]
  - Gestational diabetes [Recovered/Resolved]
  - Exposure during pregnancy [Unknown]

NARRATIVE: CASE EVENT DATE: 20200415
